FAERS Safety Report 22925185 (Version 2)
Quarter: 2023Q4

REPORT INFORMATION
  Report Type: Spontaneous
  Country: US (occurrence: US)
  Receive Date: 20230908
  Receipt Date: 20231109
  Transmission Date: 20240110
  Serious: Yes (Other)
  Sender: FDA-Public Use
  Company Number: US-Calliditas-2023CAL01134

PATIENT
  Age: 69 Year
  Sex: Female
  Weight: 78 kg

DRUGS (1)
  1. TARPEYO [Suspect]
     Active Substance: BUDESONIDE
     Indication: IgA nephropathy
     Dosage: 8MG (4MG CAPSULES) TWICE DAILY
     Route: 048
     Dates: start: 20230606, end: 20231008

REACTIONS (7)
  - Choking [Recovering/Resolving]
  - Hypophagia [Recovering/Resolving]
  - Vomiting [Recovering/Resolving]
  - COVID-19 [Unknown]
  - Inappropriate schedule of product administration [Unknown]
  - Renal transplant [Unknown]
  - End stage renal disease [Unknown]

NARRATIVE: CASE EVENT DATE: 20230801
